FAERS Safety Report 4514049-1 (Version None)
Quarter: 2004Q4

REPORT INFORMATION
  Report Type: 
  Country: None (occurrence: None)
  Receive Date: 20041130
  Receipt Date: 20030623
  Transmission Date: 20050328
  Serious: Yes (Life-Threatening, Other)
  Sender: FDA-Public Use
  Company Number: FR-GLAXOSMITHKLINE-B0302693A

PATIENT
  Age: 54 Year
  Sex: Female
  Weight: 94 kg

DRUGS (8)
  1. AVANDIA [Suspect]
     Indication: DIABETES MELLITUS NON-INSULIN-DEPENDENT
     Dosage: 4MG PER DAY
     Route: 048
     Dates: start: 20030612, end: 20030616
  2. HYTACAND [Concomitant]
     Indication: HYPERTENSION
     Dosage: 16MG PER DAY
     Route: 048
     Dates: start: 20010126
  3. EUPRESSYL [Concomitant]
     Indication: HYPERTENSION
     Dosage: 30MG PER DAY
     Route: 048
     Dates: start: 20010220
  4. AMLOR [Concomitant]
     Indication: HYPERTENSION
     Dosage: 5MG TWICE PER DAY
     Route: 048
     Dates: start: 20011214
  5. GLUCOPHAGE [Concomitant]
     Indication: DIABETES MELLITUS
     Dosage: 1000MG THREE TIMES PER DAY
     Route: 048
     Dates: start: 20011003
  6. PLAVIX [Concomitant]
     Dosage: 75MG PER DAY
     Route: 048
     Dates: start: 20030219
  7. NAXEN [Concomitant]
     Indication: OSTEOARTHRITIS
     Dosage: 100MG TWICE PER DAY
     Route: 048
     Dates: start: 20030514, end: 20030625
  8. ELISOR [Concomitant]
     Indication: DYSLIPIDAEMIA
     Dosage: 20MG PER DAY
     Route: 048
     Dates: start: 20030514

REACTIONS (5)
  - HEADACHE [None]
  - PHARYNGEAL OEDEMA [None]
  - PRURITUS [None]
  - RESPIRATORY DISORDER [None]
  - VERTIGO [None]
